FAERS Safety Report 6353529-3 (Version None)
Quarter: 2009Q3

REPORT INFORMATION
  Report Type: 
  Country: None (occurrence: None)
  Receive Date: 20090912
  Receipt Date: 20090622
  Transmission Date: 20100115
  Serious: No
  Sender: FDA-Public Use
  Company Number: US-ABBOTT-08P-163-0462350-00

PATIENT
  Sex: Female
  Weight: 72.64 kg

DRUGS (15)
  1. HUMIRA [Suspect]
     Indication: RHEUMATOID ARTHRITIS
     Route: 050
     Dates: start: 20080101
  2. FAMOTIDINE [Concomitant]
     Indication: HYPERSENSITIVITY
     Route: 048
     Dates: start: 19980101
  3. PREVACID [Concomitant]
     Indication: PROPHYLAXIS
     Route: 048
     Dates: start: 19980101
  4. PREVACID [Concomitant]
     Indication: GASTRIC DISORDER
  5. ZYRTEC [Concomitant]
     Indication: HYPERSENSITIVITY
     Route: 048
     Dates: start: 19980101
  6. SINGULAIR [Concomitant]
     Indication: HYPERSENSITIVITY
     Route: 048
     Dates: start: 19900101
  7. CRESTOR [Concomitant]
     Indication: BLOOD CHOLESTEROL
     Route: 048
  8. PROP-N/APAP (GENERIC FOR DARVOCET) [Concomitant]
     Indication: DRUG USE FOR UNKNOWN INDICATION
     Route: 048
  9. DRAMAMINE [Concomitant]
     Indication: HYPERSENSITIVITY
     Route: 048
     Dates: start: 19980101
  10. ALPRAZOLAM [Concomitant]
     Indication: ANXIETY
     Dosage: AT BEDTIME
     Route: 048
  11. LIDODERM [Concomitant]
     Indication: RHEUMATOID ARTHRITIS
     Dosage: PATCH ON HANDS AND KNEES
  12. ASTELIN [Concomitant]
     Indication: HYPERSENSITIVITY
     Dosage: 2 SQUIRTS IN EACH NOSTRIL AT NIGHT
     Route: 045
     Dates: start: 19980101
  13. LEXAPRO [Concomitant]
     Indication: ANXIETY
     Route: 048
  14. LEXAPRO [Concomitant]
     Indication: DEPRESSION
  15. METHOTREXATE [Concomitant]
     Indication: RHEUMATOID ARTHRITIS
     Dosage: EIGHT OF THE 2.5 MG TABLETS EVERY SUNDAY IN THE MORNING
     Route: 048

REACTIONS (7)
  - GLAUCOMA [None]
  - INCORRECT DOSE ADMINISTERED [None]
  - INJECTION SITE ERYTHEMA [None]
  - INJECTION SITE EXTRAVASATION [None]
  - INJECTION SITE HAEMORRHAGE [None]
  - INJECTION SITE PAIN [None]
  - INJECTION SITE SWELLING [None]
